FAERS Safety Report 5815962-5 (Version None)
Quarter: 2008Q3

REPORT INFORMATION
  Report Type: 
  Country: None (occurrence: None)
  Receive Date: 20080721
  Receipt Date: 20080709
  Transmission Date: 20090109
  Serious: Yes (Other)
  Sender: FDA-Public Use
  Company Number: PHEH2006US04086

PATIENT
  Sex: Male

DRUGS (15)
  1. AREDIA [Suspect]
  2. ZOMETA [Suspect]
     Dosage: UNK, QMO
     Route: 042
     Dates: end: 20040803
  3. ANTIHISTAMINES [Concomitant]
     Indication: SEASONAL ALLERGY
  4. FLONASE [Concomitant]
  5. LASIX [Concomitant]
  6. ALPHA LIPOIC ACID [Concomitant]
  7. VITAMIN B6 [Concomitant]
  8. VITAMIN E [Concomitant]
  9. THALIDOMIDE [Concomitant]
     Indication: MULTIPLE MYELOMA
     Dosage: 200 MG, QD
  10. COUMADIN [Concomitant]
  11. DECADRON [Concomitant]
     Dosage: 40 MG, UNK
  12. STEROIDS NOS [Concomitant]
     Dates: start: 20040101, end: 20040101
  13. VELCADE [Concomitant]
     Indication: MULTIPLE MYELOMA
  14. SYNTHROID [Concomitant]
  15. DIOVAN [Concomitant]

REACTIONS (22)
  - BIOPSY BONE [None]
  - BONE DEBRIDEMENT [None]
  - BONE DISORDER [None]
  - COSTOCHONDRITIS [None]
  - DENTAL CARIES [None]
  - DENTAL OPERATION [None]
  - DISCOMFORT [None]
  - DRY MOUTH [None]
  - ENDODONTIC PROCEDURE [None]
  - ERYTHEMA [None]
  - GINGIVAL ULCERATION [None]
  - MORGANELLA INFECTION [None]
  - OSTEOMYELITIS [None]
  - OSTEONECROSIS [None]
  - PAIN [None]
  - PERIODONTAL DISEASE [None]
  - SENSITIVITY OF TEETH [None]
  - STOMATITIS [None]
  - SWELLING [None]
  - TOOTH EXTRACTION [None]
  - TOOTH INFECTION [None]
  - WOUND TREATMENT [None]
